FAERS Safety Report 7011669-X (Version None)
Quarter: 2010Q3

REPORT INFORMATION
  Report Type: 
  Country: None (occurrence: None)
  Receive Date: 20100923
  Receipt Date: 20090519
  Transmission Date: 20110219
  Serious: No
  Sender: FDA-Public Use
  Company Number: US-WYE-H08979209

PATIENT
  Sex: Female
  Weight: 81.72 kg

DRUGS (3)
  1. PREMARIN [Suspect]
     Indication: METRORRHAGIA
     Route: 048
     Dates: start: 20090409, end: 20090414
  2. CIPRO [Concomitant]
     Indication: URINARY TRACT INFECTION
     Dosage: UNKNOWN
     Route: 065
     Dates: end: 20090414
  3. DEPO-PROVERA [Concomitant]
     Indication: CONTRACEPTION
     Dosage: INJECTION EVERY THREE MONTHS, DOSE UNSPECIFIED
     Route: 030
     Dates: start: 20090130

REACTIONS (1)
  - ANGER [None]
